FAERS Safety Report 8853379 (Version 2)
Quarter: 2012Q4

REPORT INFORMATION
  Report Type: 
  Country: JP (occurrence: JP)
  Receive Date: 20121022
  Receipt Date: 20121102
  Transmission Date: 20130627
  Serious: Yes (Life-Threatening, Other)
  Sender: FDA-Public Use
  Company Number: JP-ROCHE-1147651

PATIENT
  Age: 55 Year
  Sex: Male

DRUGS (17)
  1. RITUXIMAB [Suspect]
     Indication: LYMPHOMA
     Route: 065
  2. BENDAMUSTINE [Suspect]
     Indication: LYMPHOMA
     Dosage: Daily dose: 120 mg/m2 / 90 mg/m2
     Route: 065
  3. CYCLOPHOSPHAMIDE [Concomitant]
     Indication: LYMPHOMA
  4. DOXORUBICIN HYDROCHLORIDE [Concomitant]
     Indication: LYMPHOMA
  5. VINCRISTINE SULFATE [Concomitant]
     Indication: LYMPHOMA
  6. PREDNISOLONE [Concomitant]
     Indication: LYMPHOMA
  7. ETOPOSIDE [Concomitant]
     Indication: LYMPHOMA
  8. CYTARABINE [Concomitant]
     Indication: LYMPHOMA
  9. DEXAMETHASONE [Concomitant]
     Indication: LYMPHOMA
     Dosage: Dose: 6.6 mg/body weight
     Route: 065
  10. FLUDARABINE [Concomitant]
     Indication: LYMPHOMA
  11. MITOXANTRONE [Concomitant]
     Indication: LYMPHOMA
  12. REBAMIPIDE [Concomitant]
     Indication: PRODUCT USED FOR UNKNOWN INDICATION
  13. ALLOPURINOL [Concomitant]
     Indication: PRODUCT USED FOR UNKNOWN INDICATION
  14. SULFAMETHOXAZOLE/TRIMETHOPRIM [Concomitant]
     Indication: INFECTION PROPHYLAXIS
  15. APREPITANT [Concomitant]
     Route: 048
  16. ACYCLOVIR [Concomitant]
     Indication: INFECTION PROPHYLAXIS
     Route: 048
  17. AZASETRON [Concomitant]
     Dosage: Dose: 10 mg/body
     Route: 065

REACTIONS (1)
  - Bone marrow failure [Unknown]
